FAERS Safety Report 12917119 (Version 2)
Quarter: 2017Q1

REPORT INFORMATION
  Report Type: Spontaneous
  Country: US (occurrence: US)
  Receive Date: 20161107
  Receipt Date: 20170117
  Transmission Date: 20170428
  Serious: Yes (Hospitalization, Other)
  Sender: FDA-Public Use
  Company Number: US-ROCHE-1849933

PATIENT
  Age: 58 Year
  Sex: Female

DRUGS (4)
  1. AVASTIN [Suspect]
     Active Substance: BEVACIZUMAB
     Route: 042
     Dates: start: 20160920
  2. NIVOLUMAB [Suspect]
     Active Substance: NIVOLUMAB
     Indication: GLIOBLASTOMA
     Dosage: DATE OF LAST DOSE OF NIVOLUMAB PRIOR TO THE SERIOUS ADVERSE EVENT: 18/AUG/2016
     Route: 042
     Dates: start: 20160510
  3. EPACADOSTAT [Suspect]
     Active Substance: EPACADOSTAT
     Indication: GLIOBLASTOMA
     Dosage: DATE OF LAST DOSE OF EPACADOSTAT PRIOR TO THE SAE: 31/AUG/2016
     Route: 048
     Dates: start: 20160510, end: 20160901
  4. AVASTIN [Suspect]
     Active Substance: BEVACIZUMAB
     Indication: GLIOBLASTOMA
     Route: 042
     Dates: start: 20160907, end: 20160907

REACTIONS (6)
  - Pulmonary embolism [Recovered/Resolved]
  - Fall [Unknown]
  - Embolism [Recovered/Resolved]
  - Dyspnoea [Unknown]
  - Syncope [Unknown]
  - Foot fracture [Unknown]

NARRATIVE: CASE EVENT DATE: 20160909
